FAERS Safety Report 5314700-2 (Version None)
Quarter: 2007Q2

REPORT INFORMATION
  Report Type: 
  Country: None (occurrence: None)
  Receive Date: 20070502
  Receipt Date: 20070419
  Transmission Date: 20071010
  Serious: Yes (Hospitalization)
  Sender: FDA-Public Use
  Company Number: HQWYE790324APR07

PATIENT
  Age: 44 Year
  Sex: Male

DRUGS (1)
  1. ENBREL [Suspect]
     Indication: JUVENILE ARTHRITIS
     Dosage: UNKNOWN
     Route: 058

REACTIONS (3)
  - DISSEMINATED INTRAVASCULAR COAGULATION [None]
  - HISTIOCYTOSIS HAEMATOPHAGIC [None]
  - JUVENILE ARTHRITIS [None]
